FAERS Safety Report 8394610-7 (Version None)
Quarter: 2012Q2

REPORT INFORMATION
  Report Type: 
  Country: None (occurrence: None)
  Receive Date: 20120530
  Receipt Date: 20120523
  Transmission Date: 20120825
  Serious: Yes (Other)
  Sender: FDA-Public Use
  Company Number: MX-SANOFI-AVENTIS-2012SA036486

PATIENT
  Age: 39 Year
  Sex: Female
  Weight: 44 kg

DRUGS (1)
  1. LANTUS [Suspect]
     Indication: TYPE 2 DIABETES MELLITUS
     Dosage: DOSE: 15-20 IU
     Route: 058
     Dates: start: 20080101, end: 20120401

REACTIONS (2)
  - HYPERGLYCAEMIA [None]
  - WEIGHT DECREASED [None]
